FAERS Safety Report 19417926 (Version 2)
Quarter: 2021Q2

REPORT INFORMATION
  Report Type: Spontaneous
  Country: US (occurrence: US)
  Receive Date: 20210615
  Receipt Date: 20210622
  Transmission Date: 20210717
  Serious: No
  Sender: FDA-Public Use
  Company Number: US-PFIZER INC-2021272405

PATIENT
  Age: 36 Year
  Sex: Male

DRUGS (3)
  1. METHOTREXATE SODIUM. [Suspect]
     Active Substance: METHOTREXATE SODIUM
     Indication: DERMATITIS ATOPIC
     Dosage: UNK
  2. CYCLOSPORINE. [Suspect]
     Active Substance: CYCLOSPORINE
     Dosage: UNK
     Dates: start: 201909, end: 20201207
  3. DUPILUMAB [Suspect]
     Active Substance: DUPILUMAB
     Dosage: UNK
     Dates: start: 20150601, end: 20170901

REACTIONS (2)
  - Off label use [Unknown]
  - Drug ineffective for unapproved indication [Unknown]
